FAERS Safety Report 9636094 (Version 1)
Quarter: 2013Q4

REPORT INFORMATION
  Report Type: Spontaneous
  Country: AU (occurrence: None)
  Receive Date: 20131017
  Receipt Date: 20131017
  Transmission Date: 20140711
  Serious: Yes (Death)
  Sender: FDA-Public Use
  Company Number: 2013P1020095

PATIENT
  Age: 58 Year
  Sex: Female

DRUGS (2)
  1. GEMFIBROZIL [Suspect]
  2. ATORVASTATIN [Suspect]

REACTIONS (1)
  - Rhabdomyolysis [None]
